FAERS Safety Report 24443573 (Version 2)
Quarter: 2024Q4

REPORT INFORMATION
  Report Type: Report from Study
  Country: CA (occurrence: CA)
  Receive Date: 20241016
  Receipt Date: 20241017
  Transmission Date: 20250115
  Serious: No
  Sender: ROCHE
  Company Number: CA-ROCHE-2251916

PATIENT
  Age: 56 Year
  Sex: Female

DRUGS (19)
  1. RITUXAN [Suspect]
     Active Substance: RITUXIMAB
     Indication: Rheumatoid arthritis
     Dosage: FREQUENCY TEXT:DAY 1, 15
     Route: 042
     Dates: start: 20171114, end: 20230905
  2. RITUXAN [Suspect]
     Active Substance: RITUXIMAB
     Route: 042
  3. RITUXAN [Suspect]
     Active Substance: RITUXIMAB
     Route: 042
  4. RITUXAN [Suspect]
     Active Substance: RITUXIMAB
     Route: 042
  5. RITUXAN [Suspect]
     Active Substance: RITUXIMAB
     Route: 042
  6. RITUXAN [Suspect]
     Active Substance: RITUXIMAB
     Route: 042
  7. RITUXAN [Suspect]
     Active Substance: RITUXIMAB
     Route: 042
  8. RITUXAN [Suspect]
     Active Substance: RITUXIMAB
     Route: 042
  9. PREDNISONE [Concomitant]
     Active Substance: PREDNISONE
  10. OXYBUTYNIN [Concomitant]
     Active Substance: OXYBUTYNIN
  11. BENADRYL [Concomitant]
     Active Substance: DIPHENHYDRAMINE HYDROCHLORIDE
     Indication: Premedication
     Dosage: FIRST PIR RECEIVED
     Route: 048
     Dates: start: 20190108
  12. SOLU-MEDROL [Concomitant]
     Active Substance: METHYLPREDNISOLONE SODIUM SUCCINATE
     Indication: Premedication
     Dosage: FIRST PIR RECEIVED
     Route: 042
     Dates: start: 20190108
  13. TYLENOL [Concomitant]
     Active Substance: ACETAMINOPHEN
     Indication: Premedication
     Route: 048
     Dates: start: 20190108
  14. ARAVA [Concomitant]
     Active Substance: LEFLUNOMIDE
     Dates: start: 202303
  15. FOLIC ACID [Concomitant]
     Active Substance: FOLIC ACID
  16. IRON [Concomitant]
     Active Substance: IRON
  17. ORENCIA [Concomitant]
     Active Substance: ABATACEPT
  18. PLAQUENIL [Concomitant]
     Active Substance: HYDROXYCHLOROQUINE SULFATE
  19. SYMBICORT [Concomitant]
     Active Substance: BUDESONIDE\FORMOTEROL FUMARATE DIHYDRATE

REACTIONS (6)
  - Blood pressure systolic increased [Unknown]
  - Heart rate decreased [Unknown]
  - Blood pressure fluctuation [Unknown]
  - Blood pressure increased [Unknown]
  - Blood pressure diastolic abnormal [Unknown]
  - Heart rate increased [Unknown]

NARRATIVE: CASE EVENT DATE: 20190108
